FAERS Safety Report 9139097 (Version 2)
Quarter: 2014Q2

REPORT INFORMATION
  Report Type: Spontaneous
  Country: US (occurrence: US)
  Receive Date: 20130305
  Receipt Date: 20140408
  Transmission Date: 20141212
  Serious: Yes (Hospitalization, Other)
  Sender: FDA-Public Use
  Company Number: US-BAYER-2013-027411

PATIENT
  Age: 26 Year
  Sex: Female

DRUGS (7)
  1. YAZ [Suspect]
  2. YASMIN [Suspect]
  3. OCELLA [Suspect]
  4. SUCRALFATE [Concomitant]
     Dosage: 1 G, UNK
     Dates: start: 20090731
  5. KETOROLAC [Concomitant]
     Dosage: 10 MG, UNK
     Dates: start: 20090916
  6. PRILOSEC [Concomitant]
  7. TORADOL [Concomitant]

REACTIONS (6)
  - Cholecystectomy [None]
  - Biliary dyskinesia [None]
  - Injury [None]
  - Pain [None]
  - Emotional distress [None]
  - Pain [None]
